FAERS Safety Report 4265077-5 (Version None)
Quarter: 2004Q1

REPORT INFORMATION
  Report Type: 
  Country: None (occurrence: None)
  Receive Date: 20040106
  Receipt Date: 20040106
  Transmission Date: 20041129
  Serious: Yes (Hospitalization, Disabling)
  Sender: FDA-Public Use
  Company Number: None

PATIENT
  Age: 36 Year
  Sex: Male
  Weight: 90.7194 kg

DRUGS (3)
  1. SYNTHROID [Suspect]
     Indication: THYROXINE THERAPY
     Dosage: .250MG/DAY ORAL
     Route: 048
     Dates: start: 19950101, end: 20010101
  2. LEVOTHROID [Suspect]
     Indication: THYROXINE THERAPY
     Dosage: .175 MG /DAY ORAL
     Route: 048
     Dates: start: 20010101, end: 20030101
  3. DELETASTRYL [Concomitant]

REACTIONS (12)
  - DELUSION [None]
  - EUTHYROID SICK SYNDROME [None]
  - EYE OEDEMA [None]
  - FACIAL NERVE DISORDER [None]
  - HYPERTHYROIDISM [None]
  - HYPOTHYROIDISM [None]
  - MALABSORPTION [None]
  - MANIA [None]
  - MYOPATHY [None]
  - NERVOUSNESS [None]
  - OEDEMA [None]
  - PSYCHOTIC DISORDER DUE TO A GENERAL MEDICAL CONDITION [None]
